FAERS Safety Report 8508298-5 (Version None)
Quarter: 2012Q3

REPORT INFORMATION
  Report Type: 
  Country: None (occurrence: None)
  Receive Date: 20120713
  Receipt Date: 20120701
  Transmission Date: 20120928
  Serious: No
  Sender: FDA-Public Use
  Company Number: US-BAYER-2012-069395

PATIENT
  Sex: Female

DRUGS (1)
  1. MIRENA [Suspect]

REACTIONS (5)
  - ALOPECIA [None]
  - DEPRESSION [None]
  - MOOD SWINGS [None]
  - LOSS OF LIBIDO [None]
  - WEIGHT INCREASED [None]
